FAERS Safety Report 9692558 (Version 2)
Quarter: 2013Q4

REPORT INFORMATION
  Report Type: Report from Study
  Country: CA (occurrence: CA)
  Receive Date: 20131118
  Receipt Date: 20131127
  Transmission Date: 20140711
  Serious: Yes (Hospitalization, Other)
  Sender: FDA-Public Use
  Company Number: CA-ROCHE-1303768

PATIENT
  Age: 60 Year
  Sex: Female
  Weight: 73.5 kg

DRUGS (9)
  1. RITUXAN [Suspect]
     Indication: RHEUMATOID ARTHRITIS
     Dosage: THERAPY START DATE: 30/OCT/2013
     Route: 042
  2. DIPHENHYDRAMINE HCL [Concomitant]
     Indication: PREMEDICATION
     Route: 048
     Dates: start: 20131030
  3. ACETAMINOPHEN [Concomitant]
     Indication: PREMEDICATION
     Route: 048
     Dates: start: 20131030
  4. METHYLPREDNISOLONE [Concomitant]
     Indication: PREMEDICATION
     Route: 048
     Dates: start: 20131030
  5. PANTOLOC [Concomitant]
  6. FOLIC ACID [Concomitant]
  7. CLONAZEPAM [Concomitant]
  8. CELEXA (CANADA) [Concomitant]
  9. PREDNISONE [Concomitant]
     Route: 065
     Dates: start: 201308

REACTIONS (3)
  - Pancreatitis [Unknown]
  - Enzyme level decreased [Unknown]
  - Infusion related reaction [Not Recovered/Not Resolved]
